FAERS Safety Report 4998008-0 (Version None)
Quarter: 2006Q2

REPORT INFORMATION
  Report Type: 
  Country: None (occurrence: None)
  Receive Date: 20060510
  Receipt Date: 20060504
  Transmission Date: 20061013
  Serious: Yes (Hospitalization)
  Sender: FDA-Public Use
  Company Number: 2006UW08713

PATIENT
  Age: 85 Year
  Sex: Female
  Weight: 63.5 kg

DRUGS (2)
  1. DIPRIVAN [Suspect]
     Indication: ANAESTHESIA
     Route: 042
  2. ANTIHYPERTENSIVE MEDICATION [Concomitant]

REACTIONS (2)
  - ILL-DEFINED DISORDER [None]
  - METABOLIC ACIDOSIS [None]
